FAERS Safety Report 7540175-9 (Version None)
Quarter: 2011Q2

REPORT INFORMATION
  Report Type: 
  Country: None (occurrence: None)
  Receive Date: 20110610
  Receipt Date: 20110608
  Transmission Date: 20111010
  Serious: Yes (Hospitalization)
  Sender: FDA-Public Use
  Company Number: CH-PFIZER INC-2011124365

PATIENT
  Age: 63 Year
  Sex: Female
  Weight: 56 kg

DRUGS (10)
  1. IDARUBICIN HYDROCHLORIDE [Interacting]
     Dosage: UNK
     Dates: start: 20110513
  2. SPRYCEL [Interacting]
     Indication: ACUTE MYELOID LEUKAEMIA
     Dosage: 100 MG, 1X/DAY
     Route: 048
     Dates: start: 20110311, end: 20110509
  3. TORASEMIDE [Concomitant]
     Indication: OEDEMA
     Dosage: 10 MG, 1X/DAY
     Route: 048
     Dates: start: 20110509, end: 20110513
  4. LORAZEPAM [Concomitant]
     Indication: ANXIETY DISORDER
     Dosage: 1 MG, 1X/DAY
     Route: 060
     Dates: start: 20110503
  5. CYTOSAR-U [Suspect]
     Indication: ACUTE MYELOID LEUKAEMIA
     Dosage: 1000 MG/M2, 2X/DAY
     Route: 041
     Dates: start: 20110504, end: 20110507
  6. IDARUBICIN HYDROCHLORIDE [Interacting]
     Indication: ACUTE MYELOID LEUKAEMIA
     Dosage: 12 MG/M2, 1X/DAY
     Route: 041
     Dates: start: 20110507, end: 20110507
  7. ACETAMINOPHEN [Concomitant]
     Indication: PAIN
     Dosage: 500 MG, AS NEEDED
     Route: 041
     Dates: start: 20110509
  8. PRIMPERAN TAB [Concomitant]
     Indication: NAUSEA
     Dosage: 10 MG, AS NEEDED
     Route: 040
     Dates: start: 20110503
  9. PRIMPERAN TAB [Concomitant]
     Indication: VOMITING
  10. LIQUEMINE [Concomitant]
     Indication: PAIN
     Dosage: 5000 IU, 2X/DAY
     Route: 058
     Dates: start: 20110509, end: 20110513

REACTIONS (8)
  - AGRANULOCYTOSIS [None]
  - CEREBELLAR SYNDROME [None]
  - ACUTE PULMONARY OEDEMA [None]
  - GENERALISED OEDEMA [None]
  - NEUROTOXICITY [None]
  - CEREBELLAR ATAXIA [None]
  - DRUG INTERACTION [None]
  - DYSARTHRIA [None]
